FAERS Safety Report 5449933-8 (Version None)
Quarter: 2007Q3

REPORT INFORMATION
  Report Type: 
  Country: None (occurrence: None)
  Receive Date: 20070912
  Receipt Date: 20070911
  Transmission Date: 20080115
  Serious: Yes (Other)
  Sender: FDA-Public Use
  Company Number: IT-BRISTOL-MYERS SQUIBB COMPANY-13902960

PATIENT
  Age: 73 Year
  Sex: Male

DRUGS (5)
  1. PRASTEROL TABS [Suspect]
     Indication: CAROTID ARTERY STENOSIS
     Dates: start: 20050131, end: 20070630
  2. HIZAAR [Suspect]
     Indication: ESSENTIAL HYPERTENSION
     Route: 048
     Dates: start: 20060714, end: 20070622
  3. DILATREND [Suspect]
     Indication: CORONARY ANGIOPLASTY
     Route: 048
     Dates: start: 20050210, end: 20070906
  4. ASPIRIN [Concomitant]
  5. TIMOPTIC [Concomitant]

REACTIONS (1)
  - CHRONIC MYELOID LEUKAEMIA [None]
